FAERS Safety Report 8447086-5 (Version None)
Quarter: 2012Q2

REPORT INFORMATION
  Report Type: 
  Country: None (occurrence: None)
  Receive Date: 20120612
  Receipt Date: 20120601
  Transmission Date: 20120825
  Serious: Yes (Other)
  Sender: FDA-Public Use
  Company Number: GER/UKI/12/0024547

PATIENT
  Age: 59 Year
  Weight: 117 kg

DRUGS (5)
  1. THIAMINE HCL [Concomitant]
  2. CLOPIDEGREL [Suspect]
     Indication: ACUTE CORONARY SYNDROME
  3. OLANZAPINE [Concomitant]
  4. VITAMIN B SUBSTANCES (VITAMIN B COMPLEX) [Concomitant]
  5. CITALOPRAM HYDROBROMIDE [Concomitant]

REACTIONS (2)
  - RASH MACULO-PAPULAR [None]
  - EOSINOPHILIA [None]
